FAERS Safety Report 5346208-2 (Version None)
Quarter: 2007Q2

REPORT INFORMATION
  Report Type: 
  Country: None (occurrence: None)
  Receive Date: 20070605
  Receipt Date: 20070525
  Transmission Date: 20071010
  Serious: Yes (Life-Threatening)
  Sender: FDA-Public Use
  Company Number: JP-SANOFI-SYNTHELABO-A01200705860

PATIENT
  Age: 53 Year
  Sex: Male

DRUGS (3)
  1. FLUOROURACIL [Concomitant]
     Dosage: 600 MG/BODY IN BOLUS THEN 3600 MG/BODY AS INFUSION
     Route: 041
     Dates: start: 20070522, end: 20070523
  2. ISOVORIN [Concomitant]
     Route: 041
     Dates: start: 20070522, end: 20070523
  3. OXALIPLATIN [Suspect]
     Route: 041
     Dates: start: 20070522, end: 20070522

REACTIONS (1)
  - LOSS OF CONSCIOUSNESS [None]
